FAERS Safety Report 10016753 (Version 2)
Quarter: 2014Q1

REPORT INFORMATION
  Report Type: Spontaneous
  Country: ES (occurrence: ES)
  Receive Date: 20140318
  Receipt Date: 20140326
  Transmission Date: 20141002
  Serious: Yes (Hospitalization, Other)
  Sender: FDA-Public Use
  Company Number: PHHY2014ES028592

PATIENT
  Age: 73 Year
  Sex: Female

DRUGS (10)
  1. SINTROM [Suspect]
     Indication: ATRIAL FIBRILLATION
     Dosage: UNK UKN, UNK
     Route: 048
     Dates: start: 2005
  2. OMEPRAZOL [Interacting]
     Indication: PROPHYLAXIS
     Dosage: UNK UKN, UNK
     Route: 048
     Dates: start: 2005
  3. ROSUVASTATIN [Interacting]
     Dosage: UNK UKN, UNK
     Route: 048
     Dates: start: 2005
  4. ADIRO [Interacting]
     Indication: ATRIAL FIBRILLATION
     Dosage: 100 MG, QD
     Route: 048
     Dates: start: 2005, end: 20140208
  5. MULTAQ [Interacting]
     Indication: ATRIAL FIBRILLATION
     Dosage: UNK UKN, UNK
     Dates: start: 2005
  6. EPLERENONE [Concomitant]
     Indication: CARDIAC FAILURE
     Dosage: UNK UKN, UNK
     Route: 048
  7. FUROSEMIDE [Concomitant]
     Indication: CARDIAC FAILURE
     Dosage: UNK UKN, UNK
     Route: 048
  8. ALOPURINOL [Concomitant]
     Dosage: UNK UKN, UNK
  9. INDACATEROL [Concomitant]
     Dosage: UNK UKN, UNK
  10. VALSARTAN + HCT [Concomitant]
     Indication: CARDIAC FAILURE
     Dosage: UNK UKN, UNK

REACTIONS (4)
  - Renal failure acute [Recovered/Resolved]
  - Haemangioma [Not Recovered/Not Resolved]
  - Anaemia [Recovered/Resolved]
  - Melaena [Recovered/Resolved]
